FAERS Safety Report 19371668 (Version 3)
Quarter: 2021Q3

REPORT INFORMATION
  Report Type: Spontaneous
  Country: FR (occurrence: FR)
  Receive Date: 20210603
  Receipt Date: 20210716
  Transmission Date: 20211014
  Serious: Yes (Death, Other)
  Sender: FDA-Public Use
  Company Number: NVSC2021FR122523

PATIENT

DRUGS (1)
  1. LUTATHERA [Suspect]
     Active Substance: LUTETIUM OXODOTREOTIDE LU-177
     Indication: PRODUCT USED FOR UNKNOWN INDICATION
     Dosage: UNK
     Route: 065
     Dates: start: 20190212, end: 20190806

REACTIONS (3)
  - Death [Fatal]
  - Malignant peritoneal neoplasm [Unknown]
  - Disease progression [Unknown]

NARRATIVE: CASE EVENT DATE: 201906
